FAERS Safety Report 8886918 (Version 1)
Quarter: 2012Q4

REPORT INFORMATION
  Report Type: 
  Country: US (occurrence: US)
  Receive Date: 20121105
  Receipt Date: 20121105
  Transmission Date: 20130627
  Serious: Yes (Other)
  Sender: FDA-Public Use
  Company Number: US-ASTRAZENECA-2012SE82138

PATIENT
  Age: 80 Year
  Sex: Female

DRUGS (6)
  1. NEXIUM [Suspect]
     Indication: GASTROOESOPHAGEAL REFLUX DISEASE
     Route: 048
  2. PRILOSEC [Suspect]
     Route: 048
  3. DIOVAN [Concomitant]
     Indication: BLOOD PRESSURE
  4. CALCIUM [Concomitant]
     Indication: BONE DISORDER
  5. VIT C [Concomitant]
     Indication: PROPHYLAXIS
  6. MULTI VITAMIN [Concomitant]
     Indication: PROPHYLAXIS

REACTIONS (2)
  - Malignant melanoma [Unknown]
  - Oedema peripheral [Unknown]
